FAERS Safety Report 6814396-4 (Version None)
Quarter: 2010Q3

REPORT INFORMATION
  Report Type: 
  Country: None (occurrence: None)
  Receive Date: 20100702
  Receipt Date: 20100628
  Transmission Date: 20110219
  Serious: Yes (Hospitalization, Other)
  Sender: FDA-Public Use
  Company Number: NL-BRISTOL-MYERS SQUIBB COMPANY-15170095

PATIENT
  Age: 70 Year
  Sex: Male

DRUGS (4)
  1. DASATINIB [Suspect]
     Indication: GLIOBLASTOMA
     Dosage: 1 DF= 100(UNIT NOT SPEC). INTERUPTED ON 10JUN10, ORAL
     Route: 048
     Dates: start: 20100519
  2. CCNU [Suspect]
     Indication: GLIOBLASTOMA
     Dosage: 1 DF= 220(UNIT NOT SPEC)
     Route: 048
     Dates: start: 20100519
  3. SOTALOL HCL [Concomitant]
  4. FOSINOPRIL SODIUM [Concomitant]

REACTIONS (1)
  - SUBDURAL HAEMATOMA [None]
